FAERS Safety Report 7101788-1 (Version None)
Quarter: 2010Q4

REPORT INFORMATION
  Report Type: 
  Country: None (occurrence: None)
  Receive Date: 20101115
  Receipt Date: 20101104
  Transmission Date: 20110411
  Serious: Yes (Hospitalization)
  Sender: FDA-Public Use
  Company Number: DE-SANOFI-AVENTIS-2010SA065965

PATIENT
  Age: 73 Year
  Sex: Male
  Weight: 95 kg

DRUGS (10)
  1. MULTAQ [Suspect]
     Indication: ATRIAL FIBRILLATION
     Route: 048
     Dates: start: 20100316, end: 20100928
  2. MARCUMAR [Concomitant]
     Dosage: ACCORDING TO INR
     Route: 065
  3. KALINOR [Concomitant]
     Route: 065
  4. MAGNETRANS [Concomitant]
     Route: 065
  5. RAMIPRIL [Concomitant]
     Route: 065
  6. TORASEMIDE [Concomitant]
     Dosage: DOSAGE: 1/2 TABLET DAILY
     Route: 065
  7. AMLODIPINE [Concomitant]
     Route: 065
  8. MOXONIDINE [Concomitant]
     Route: 065
  9. SIMVASTATIN [Concomitant]
     Route: 065
  10. METFORMIN HCL [Concomitant]
     Route: 065

REACTIONS (3)
  - ARRHYTHMIA [None]
  - VENTRICULAR EXTRASYSTOLES [None]
  - VENTRICULAR TACHYCARDIA [None]
